FAERS Safety Report 19716729 (Version 1)
Quarter: 2021Q3

REPORT INFORMATION
  Report Type: Report from Study
  Country: US (occurrence: US)
  Receive Date: 20210818
  Receipt Date: 20210818
  Transmission Date: 20211014
  Serious: Yes (Other)
  Sender: FDA-Public Use
  Company Number: US-ASTELLAS-2021US030747

PATIENT
  Age: 73 Year
  Sex: Male

DRUGS (2)
  1. ASG?22CE [Suspect]
     Active Substance: ENFORTUMAB VEDOTIN
     Indication: TRANSITIONAL CELL CARCINOMA
     Dosage: 1.25 MG/KG, CYCLIC (ON DAYS 1, 8 AND 15 OF 28 DAYS CYCLE)
     Route: 042
     Dates: start: 20201015
  2. ASG?22CE [Suspect]
     Active Substance: ENFORTUMAB VEDOTIN
     Dosage: 1 MG/KG, CYCLIC (ON DAYS 1,8 AND 15 OF 28 DAYS CYCLE)
     Route: 042
     Dates: end: 20210210

REACTIONS (5)
  - Neuropathy peripheral [Not Recovered/Not Resolved]
  - Hyperglycaemia [Recovering/Resolving]
  - Alopecia [Unknown]
  - Thrombocytopenia [Unknown]
  - Anaemia [Recovering/Resolving]

NARRATIVE: CASE EVENT DATE: 20201030
